FAERS Safety Report 17991841 (Version 2)
Quarter: 2020Q4

REPORT INFORMATION
  Report Type: Report from Study
  Country: US (occurrence: US)
  Receive Date: 20200708
  Receipt Date: 20201013
  Transmission Date: 20210113
  Serious: Yes (Hospitalization)
  Sender: FDA-Public Use
  Company Number: US-AUROBINDO-AUR-APL-2020-032138

PATIENT
  Age: 7 Year
  Sex: Male

DRUGS (6)
  1. METHYLPREDNISOLONE. [Suspect]
     Active Substance: METHYLPREDNISOLONE
     Dosage: COMPLETED TILL 11TH METHYLPREDNISOLONE PULSES
     Route: 065
  2. METHOTREXATE. [Suspect]
     Active Substance: METHOTREXATE
     Indication: PROGRESSIVE FACIAL HEMIATROPHY
     Dosage: 25 MILLIGRAM, EVERY WEEK
     Route: 058
  3. FOLIC ACID. [Concomitant]
     Active Substance: FOLIC ACID
     Indication: SUPPLEMENTATION THERAPY
     Dosage: UNK, ONCE A DAY
     Route: 065
  4. ONDANSETRON [Concomitant]
     Active Substance: ONDANSETRON
     Indication: PREMEDICATION
     Dosage: UNK
     Route: 065
  5. METHYLPREDNISOLONE. [Suspect]
     Active Substance: METHYLPREDNISOLONE
     Indication: PROGRESSIVE FACIAL HEMIATROPHY
     Dosage: 30 MILLIGRAM/KILOGRAM, EVERY WEEK
     Route: 042
  6. ABATACEPT [Suspect]
     Active Substance: ABATACEPT
     Indication: PROGRESSIVE FACIAL HEMIATROPHY
     Dosage: 10 MILLIGRAM/KILOGRAM (DAYS 0, 14, 28, MONTHLY)
     Route: 042

REACTIONS (2)
  - Agitation [Unknown]
  - Aggression [Unknown]
